FAERS Safety Report 22303648 (Version 3)
Quarter: 2023Q2

REPORT INFORMATION
  Report Type: Report from Study
  Country: US (occurrence: US)
  Receive Date: 20230510
  Receipt Date: 20230519
  Transmission Date: 20230721
  Serious: Yes (Hospitalization)
  Sender: FDA-Public Use
  Company Number: US-AMGEN-USASP2023080342

PATIENT
  Age: 52 Year
  Sex: Female

DRUGS (1)
  1. REPATHA [Suspect]
     Active Substance: EVOLOCUMAB
     Indication: Cardiovascular disorder
     Dosage: 420 MILLIGRAM, QMO
     Route: 065

REACTIONS (8)
  - Urinary tract infection [Unknown]
  - Ocular hyperaemia [Unknown]
  - Confusional state [Unknown]
  - Movement disorder [Unknown]
  - Product communication issue [Unknown]
  - Drug dose omission by device [Unknown]
  - Product storage error [Unknown]
  - Product administration error [Unknown]

NARRATIVE: CASE EVENT DATE: 20230404
